FAERS Safety Report 6017602-1 (Version None)
Quarter: 2008Q4

REPORT INFORMATION
  Report Type: 
  Country: None (occurrence: None)
  Receive Date: 20081223
  Receipt Date: 20081217
  Transmission Date: 20090506
  Serious: Yes (Hospitalization)
  Sender: FDA-Public Use
  Company Number: CA-BIOGENIDEC-2008BI029655

PATIENT
  Age: 33 Year
  Sex: Female

DRUGS (1)
  1. AVONEX [Suspect]
     Indication: MULTIPLE SCLEROSIS
     Route: 030
     Dates: start: 20080820, end: 20081017

REACTIONS (7)
  - ANXIETY [None]
  - COGNITIVE DISORDER [None]
  - FATIGUE [None]
  - KERATITIS [None]
  - RESTLESSNESS [None]
  - SLEEP DISORDER [None]
  - URINARY TRACT INFECTION [None]
